FAERS Safety Report 7835606-0 (Version None)
Quarter: 2011Q4

REPORT INFORMATION
  Report Type: 
  Country: None (occurrence: None)
  Receive Date: 20111024
  Receipt Date: 20111014
  Transmission Date: 20120403
  Serious: Yes (Hospitalization)
  Sender: FDA-Public Use
  Company Number: PHHO2011TH16198

PATIENT
  Sex: Male
  Weight: 63.2 kg

DRUGS (5)
  1. MYFORTIC [Suspect]
     Indication: RENAL TRANSPLANT
     Dosage: 720 MG Q^N 24 HR
     Dates: start: 20110920, end: 20111012
  2. MYFORTIC [Suspect]
     Dosage: UNK
     Dates: start: 20111013
  3. PREDNISOLONE [Concomitant]
     Dosage: 150 MG, QD
     Dates: start: 20110920
  4. PROGRAF [Suspect]
     Indication: RENAL TRANSPLANT
     Dosage: 2.5-0-2.0
     Dates: start: 20110920
  5. PROGRAF [Suspect]
     Dosage: 2.5-0-2.0
     Dates: start: 20111009

REACTIONS (4)
  - AZOTAEMIA [None]
  - DISEASE PROGRESSION [None]
  - CYTOMEGALOVIRUS COLITIS [None]
  - DEHYDRATION [None]
